FAERS Safety Report 7570566-1 (Version None)
Quarter: 2011Q2

REPORT INFORMATION
  Report Type: 
  Country: None (occurrence: None)
  Receive Date: 20110624
  Receipt Date: 20110404
  Transmission Date: 20111010
  Serious: No
  Sender: FDA-Public Use
  Company Number: US-ALLERGAN-1104667US

PATIENT
  Age: 54 Year
  Sex: Female

DRUGS (3)
  1. LATISSE [Suspect]
     Dosage: 1 GTT, Q WEEK
     Dates: start: 20110318
  2. ROCEPHIN IV FOR ONE YEAR [Concomitant]
     Dosage: UNK
  3. LATISSE [Suspect]
     Indication: MADAROSIS
     Dosage: 1 GTT, QHS
     Dates: start: 20110122

REACTIONS (3)
  - EYE PRURITUS [None]
  - EYELIDS PRURITUS [None]
  - WRONG TECHNIQUE IN DRUG USAGE PROCESS [None]
